FAERS Safety Report 7086953-4 (Version None)
Quarter: 2010Q4

REPORT INFORMATION
  Report Type: 
  Country: None (occurrence: None)
  Receive Date: 20101106
  Receipt Date: 20101102
  Transmission Date: 20110411
  Serious: No
  Sender: FDA-Public Use
  Company Number: US-WYE-H11156009

PATIENT
  Sex: Male
  Weight: 108.96 kg

DRUGS (7)
  1. PRISTIQ [Suspect]
     Indication: DEPRESSION
     Route: 048
     Dates: start: 20090801, end: 20090901
  2. PRISTIQ [Suspect]
     Dosage: TOOK ^DRUG HOLIDAY^ AS RECOMMENDED BY MD, THEN RESTARTED
     Dates: start: 20090901, end: 20090901
  3. PRISTIQ [Suspect]
     Dosage: UNKNOWN
     Dates: start: 20090901, end: 20100201
  4. PRISTIQ [Suspect]
     Dosage: RESTARTED AT AN UNKNOWN  DOSE, THEN WEANED OFF
     Dates: start: 20100101, end: 20100101
  5. NEXIUM [Concomitant]
  6. XANAX [Concomitant]
  7. TAMSULOSIN HYDROCHLORIDE [Concomitant]

REACTIONS (7)
  - ANORGASMIA [None]
  - DISCOMFORT [None]
  - DRUG WITHDRAWAL SYNDROME [None]
  - EJACULATION FAILURE [None]
  - HEADACHE [None]
  - PARAESTHESIA [None]
  - SLEEP DISORDER [None]
